FAERS Safety Report 10258164 (Version 1)
Quarter: 2014Q2

REPORT INFORMATION
  Report Type: Report from Study
  Country: US (occurrence: US)
  Receive Date: 20140625
  Receipt Date: 20140625
  Transmission Date: 20141212
  Serious: No
  Sender: FDA-Public Use
  Company Number: US-VERTEX PHARMACEUTICALS INC-2014-002775

PATIENT
  Sex: Male

DRUGS (1)
  1. IVACAFTOR [Suspect]
     Indication: CYSTIC FIBROSIS
     Dosage: 150 MG, QD
     Route: 065
     Dates: start: 20120328

REACTIONS (2)
  - Sinusitis [Recovering/Resolving]
  - Sinus disorder [Recovering/Resolving]
